FAERS Safety Report 23397185 (Version 1)
Quarter: 2024Q1

REPORT INFORMATION
  Report Type: Report from Study
  Country: MX (occurrence: MX)
  Receive Date: 20240112
  Receipt Date: 20240112
  Transmission Date: 20240410
  Serious: Yes (Death, Other)
  Sender: FDA-Public Use
  Company Number: MX-ABBVIE-5583144

PATIENT
  Sex: Male
  Weight: 65 kg

DRUGS (1)
  1. VENCLEXTA [Suspect]
     Active Substance: VENETOCLAX
     Indication: Chronic lymphocytic leukaemia
     Dosage: 400 MILLIGRAM, FORM STRENGTH: 100 MILLIGRAM, FREQUENCY : DAILY
     Route: 048
     Dates: start: 20231105

REACTIONS (2)
  - Chronic lymphocytic leukaemia [Fatal]
  - Pancreatic carcinoma [Fatal]
